FAERS Safety Report 16361166 (Version 1)
Quarter: 2019Q3

REPORT INFORMATION
  Report Type: Spontaneous
  Country: US (occurrence: US)
  Receive Date: 20190524
  Receipt Date: 20190524
  Transmission Date: 20191004
  Serious: Yes (Life-Threatening, Hospitalization)
  Sender: FDA-Public Use
  Company Number: None

PATIENT
  Age: 78 Year
  Sex: Male
  Weight: 59 kg

DRUGS (7)
  1. ASPIRIN EC 81MG DAILY [Concomitant]
     Dates: start: 20180606, end: 20180615
  2. KEFLEX 500MG TID [Concomitant]
     Dates: start: 20180614, end: 20180618
  3. RIVAROXABAN [Suspect]
     Active Substance: RIVAROXABAN
     Indication: THROMBOEMBOLECTOMY
     Route: 048
     Dates: start: 20180608, end: 20180615
  4. CANAGLIFLOZIN [Concomitant]
     Active Substance: CANAGLIFLOZIN
     Dates: start: 20180606
  5. ATROVASTATIN 40MG QHS [Concomitant]
     Dates: start: 20180606
  6. GLIPIZIDE 5MG BID [Concomitant]
     Dates: start: 20180606
  7. RIVAROXABAN [Suspect]
     Active Substance: RIVAROXABAN
     Indication: THROMBECTOMY
     Route: 048
     Dates: start: 20180608, end: 20180615

REACTIONS (2)
  - Hypovolaemic shock [None]
  - Gastrointestinal haemorrhage [None]

NARRATIVE: CASE EVENT DATE: 20180615
